FAERS Safety Report 4788613-9 (Version None)
Quarter: 2005Q4

REPORT INFORMATION
  Report Type: 
  Country: None (occurrence: None)
  Receive Date: 20051005
  Receipt Date: 20050914
  Transmission Date: 20060501
  Serious: Yes (Other)
  Sender: FDA-Public Use
  Company Number: US-GLAXOSMITHKLINE-A0575216A

PATIENT
  Age: 54 Year
  Sex: Female

DRUGS (5)
  1. ARIXTRA [Suspect]
     Dates: start: 20050901
  2. SEROQUEL [Concomitant]
  3. TOPAMAX [Concomitant]
  4. TRAZODONE [Concomitant]
  5. ABILIFY [Concomitant]

REACTIONS (5)
  - INTERNATIONAL NORMALISED RATIO INCREASED [None]
  - INTRACRANIAL ANEURYSM [None]
  - MENTAL STATUS CHANGES [None]
  - PULMONARY EMBOLISM [None]
  - URINARY TRACT INFECTION [None]
